FAERS Safety Report 4575963-4 (Version None)
Quarter: 2005Q1

REPORT INFORMATION
  Report Type: 
  Country: None (occurrence: None)
  Receive Date: 20050209
  Receipt Date: 20050131
  Transmission Date: 20050727
  Serious: Yes (Hospitalization)
  Sender: FDA-Public Use
  Company Number: PHFR2005GB00745

PATIENT
  Age: 80 Year
  Sex: Male

DRUGS (5)
  1. DICLOFENAC [Suspect]
     Route: 048
     Dates: start: 20050111, end: 20050111
  2. WARFARIN SODIUM [Suspect]
     Indication: COLITIS
     Route: 048
  3. CO-AMILOFRUSE [Concomitant]
     Indication: OEDEMA
  4. GLIMEPIRIDE [Concomitant]
     Indication: DIABETES MELLITUS
     Dosage: 3MG/DAY
     Route: 048
  5. WARFARIN SODIUM [Concomitant]
     Indication: DEEP VEIN THROMBOSIS

REACTIONS (5)
  - DRUG INTERACTION [None]
  - EPISTAXIS [None]
  - GASTRITIS [None]
  - INTERNATIONAL NORMALISED RATIO INCREASED [None]
  - VOMITING [None]
